FAERS Safety Report 23325516 (Version 1)
Quarter: 2023Q4

REPORT INFORMATION
  Report Type: Spontaneous
  Country: FR (occurrence: FR)
  Receive Date: 20231221
  Receipt Date: 20231221
  Transmission Date: 20240110
  Serious: Yes (Hospitalization)
  Sender: FDA-Public Use
  Company Number: FR-JNJFOC-20230801456

PATIENT

DRUGS (2)
  1. IMBRUVICA [Suspect]
     Active Substance: IBRUTINIB
     Indication: Chronic lymphocytic leukaemia
     Route: 048
  2. IMBRUVICA [Suspect]
     Active Substance: IBRUTINIB
     Indication: Chronic lymphocytic leukaemia
     Route: 048

REACTIONS (19)
  - Aspergillus infection [Unknown]
  - Viral infection [Unknown]
  - Device related infection [Unknown]
  - Infection [Unknown]
  - Bacterial infection [Unknown]
  - Fungal infection [Unknown]
  - Pneumocystis jirovecii pneumonia [Unknown]
  - Herpes simplex reactivation [Unknown]
  - Cryptococcosis [Unknown]
  - Cytomegalovirus infection [Unknown]
  - Cardiovascular disorder [Unknown]
  - Tumour lysis syndrome [Unknown]
  - Shock [Unknown]
  - Adenovirus infection [Unknown]
  - Systemic mycosis [Unknown]
  - Haemorrhage [Unknown]
  - Acute respiratory failure [Unknown]
  - Acute kidney injury [Unknown]
  - Coronavirus infection [Unknown]
